FAERS Safety Report 7389618-4 (Version None)
Quarter: 2011Q1

REPORT INFORMATION
  Report Type: 
  Country: None (occurrence: None)
  Receive Date: 20110323
  Receipt Date: 20110311
  Transmission Date: 20110831
  Serious: Yes (Hospitalization, Other)
  Sender: FDA-Public Use
  Company Number: 2010AC000324

PATIENT
  Age: 49 Year
  Sex: Female

DRUGS (12)
  1. COREG [Concomitant]
  2. HYDROCODONE [Concomitant]
  3. ALBUTEROL [Concomitant]
  4. *FUROSEMIDE [Concomitant]
  5. K-DUR [Concomitant]
  6. NAPROSYN [Concomitant]
  7. SLOW-MAG [Concomitant]
  8. PRINIVIL [Concomitant]
  9. ALDACTONE [Concomitant]
  10. DIGOXIN [Suspect]
     Dosage: 0.125 MG;QD;PO
     Route: 048
     Dates: start: 20050101, end: 20100101
  11. ASPIRIN [Concomitant]
  12. ACETAMINOPHEN [Concomitant]

REACTIONS (16)
  - ABNORMAL WEIGHT GAIN [None]
  - CHEST PAIN [None]
  - GENERAL PHYSICAL HEALTH DETERIORATION [None]
  - UNEVALUABLE EVENT [None]
  - DYSPNOEA [None]
  - IMPLANTABLE DEFIBRILLATOR INSERTION [None]
  - CARDIOACTIVE DRUG LEVEL BELOW THERAPEUTIC [None]
  - ANXIETY [None]
  - ECONOMIC PROBLEM [None]
  - PAIN IN EXTREMITY [None]
  - CARDIAC FAILURE CONGESTIVE [None]
  - OBSTRUCTIVE AIRWAYS DISORDER [None]
  - CONGESTIVE CARDIOMYOPATHY [None]
  - PAIN [None]
  - CARDIAC FAILURE CHRONIC [None]
  - MULTIPLE INJURIES [None]
